FAERS Safety Report 7463194-X (Version None)
Quarter: 2011Q2

REPORT INFORMATION
  Report Type: 
  Country: None (occurrence: None)
  Receive Date: 20110506
  Receipt Date: 20100913
  Transmission Date: 20111010
  Serious: Yes (Other)
  Sender: FDA-Public Use
  Company Number: GB-GENENTECH-271737

PATIENT
  Sex: Male

DRUGS (4)
  1. ACTIVASE [Suspect]
     Indication: LUNG INFECTION
     Dosage: UNK
     Dates: start: 20070325, end: 20070526
  2. METRONIDAZOLE [Concomitant]
     Indication: PRODUCT USED FOR UNKNOWN INDICATION
     Dosage: UNK
     Dates: start: 20070525
  3. PULMOZYME [Suspect]
     Indication: LUNG INFECTION
     Dosage: UNK
     Route: 065
     Dates: start: 20070525
  4. CEFUROXIME [Concomitant]
     Indication: PRODUCT USED FOR UNKNOWN INDICATION
     Dosage: UNK
     Dates: start: 20070525

REACTIONS (1)
  - HAEMOPTYSIS [None]
